FAERS Safety Report 7249714-9 (Version None)
Quarter: 2011Q1

REPORT INFORMATION
  Report Type: 
  Country: None (occurrence: None)
  Receive Date: 20110128
  Receipt Date: 20101013
  Transmission Date: 20110831
  Serious: No
  Sender: FDA-Public Use
  Company Number: A0883764A

PATIENT
  Age: 39 Year
  Sex: Female
  Weight: 59.1 kg

DRUGS (4)
  1. NORVIR [Concomitant]
  2. EPIVIR [Suspect]
     Indication: HIV INFECTION
     Route: 048
     Dates: start: 20100913, end: 20100915
  3. ISENTRESS [Concomitant]
  4. PREZISTA [Concomitant]

REACTIONS (1)
  - HEADACHE [None]
